FAERS Safety Report 4808323-9 (Version None)
Quarter: 2005Q4

REPORT INFORMATION
  Report Type: 
  Country: None (occurrence: None)
  Receive Date: 20051021
  Receipt Date: 20051007
  Transmission Date: 20060501
  Serious: Yes (Hospitalization)
  Sender: FDA-Public Use
  Company Number: 2005P1000474

PATIENT
  Age: 77 Year
  Sex: Male
  Weight: 73 kg

DRUGS (5)
  1. RETEPLASE (RETEPLASE) [Suspect]
     Indication: ACUTE MYOCARDIAL INFARCTION
     Dosage: IV
     Route: 042
     Dates: start: 20050420
  2. ASPIRIN [Concomitant]
  3. BISOPROLOL [Concomitant]
  4. SIMVASTATIN [Concomitant]
  5. ALACEPRIL [Concomitant]

REACTIONS (2)
  - CORONARY ARTERY DISEASE [None]
  - RASH [None]
